FAERS Safety Report 10034239 (Version 1)
Quarter: 2014Q1

REPORT INFORMATION
  Report Type: Spontaneous
  Country: US (occurrence: None)
  Receive Date: 20140324
  Receipt Date: 20140324
  Transmission Date: 20141002
  Serious: Yes (Life-Threatening)
  Sender: FDA-Public Use
  Company Number: None

PATIENT
  Age: 54 Year
  Sex: Female
  Weight: 51.71 kg

DRUGS (1)
  1. COPAXONE [Suspect]
     Dates: start: 20140307, end: 20140310

REACTIONS (7)
  - Malaise [None]
  - Head discomfort [None]
  - Chills [None]
  - Chest discomfort [None]
  - Back pain [None]
  - Musculoskeletal stiffness [None]
  - Apparent death [None]
